FAERS Safety Report 5101204-5 (Version None)
Quarter: 2006Q3

REPORT INFORMATION
  Report Type: 
  Country: None (occurrence: None)
  Receive Date: 20060911
  Receipt Date: 20060517
  Transmission Date: 20061208
  Serious: Yes (Hospitalization)
  Sender: FDA-Public Use
  Company Number: US-ROCHE-448694

PATIENT
  Age: 65 Year
  Sex: Female

DRUGS (4)
  1. PEGASYS [Suspect]
     Route: 058
     Dates: start: 20060303, end: 20060310
  2. PEGASYS [Suspect]
     Route: 058
     Dates: start: 20060312, end: 20060811
  3. COPEGUS [Suspect]
     Route: 048
     Dates: start: 20060303, end: 20060310
  4. COPEGUS [Suspect]
     Route: 048
     Dates: start: 20060312, end: 20060811

REACTIONS (13)
  - ALOPECIA [None]
  - ANAEMIA [None]
  - CHEST DISCOMFORT [None]
  - CHEST PAIN [None]
  - DEPRESSION [None]
  - DIZZINESS [None]
  - FATIGUE [None]
  - NAUSEA [None]
  - RASH [None]
  - RECTAL HAEMORRHAGE [None]
  - SYNCOPE [None]
  - TREMOR [None]
  - WEIGHT DECREASED [None]
